FAERS Safety Report 9036952 (Version 1)
Quarter: 2013Q1

REPORT INFORMATION
  Report Type: Spontaneous
  Country: US (occurrence: None)
  Receive Date: 20130122
  Receipt Date: 20130122
  Transmission Date: 20140127
  Serious: No
  Sender: FDA-Public Use
  Company Number: None

PATIENT
  Sex: Female
  Weight: 52.16 kg

DRUGS (1)
  1. LETROZOLE [Suspect]
     Route: 048
     Dates: start: 20121217

REACTIONS (3)
  - Breast pain [None]
  - Product substitution issue [None]
  - Hyperaesthesia [None]
